FAERS Safety Report 22174877 (Version 2)
Quarter: 2023Q4

REPORT INFORMATION
  Report Type: Spontaneous
  Country: TR (occurrence: TR)
  Receive Date: 20230405
  Receipt Date: 20231205
  Transmission Date: 20240110
  Serious: Yes (Other)
  Sender: FDA-Public Use
  Company Number: TR-002147023-NVSC2023TR076273

PATIENT
  Sex: Male

DRUGS (1)
  1. DESFERAL [Suspect]
     Active Substance: DEFEROXAMINE MESYLATE
     Indication: Thalassaemia
     Dosage: UNK (FLACONE)
     Route: 065

REACTIONS (4)
  - Organ failure [Unknown]
  - Iron overload [Unknown]
  - Hyperthyroidism [Unknown]
  - Product supply issue [Unknown]
